FAERS Safety Report 13433952 (Version 2)
Quarter: 2017Q3

REPORT INFORMATION
  Report Type: Spontaneous
  Country: FR (occurrence: FR)
  Receive Date: 20170413
  Receipt Date: 20170731
  Transmission Date: 20171127
  Serious: Yes (Other)
  Sender: FDA-Public Use
  Company Number: FR-VIIV HEALTHCARE LIMITED-FR2017GSK050858

PATIENT
  Age: 59 Year
  Sex: Male
  Weight: 112 kg

DRUGS (4)
  1. TRIUMEQ [Suspect]
     Active Substance: ABACAVIR SULFATE\DOLUTEGRAVIR SODIUM\LAMIVUDINE
     Indication: HIV INFECTION
     Dosage: 1 DF, 1D
     Route: 048
     Dates: start: 20160110, end: 20160719
  2. CRESTOR [Concomitant]
     Active Substance: ROSUVASTATIN CALCIUM
     Dosage: 10 MG, 1D
     Route: 048
     Dates: start: 20090914
  3. TARKA [Concomitant]
     Active Substance: TRANDOLAPRIL\VERAPAMIL HYDROCHLORIDE
     Dosage: UNK
     Route: 048
     Dates: start: 20110131
  4. LOPRIL [Concomitant]
     Active Substance: LISINOPRIL
     Dosage: 25 MG, BID
     Route: 048
     Dates: start: 20061127

REACTIONS (10)
  - Pain [Recovered/Resolved]
  - Myalgia [Recovered/Resolved]
  - Blood HIV RNA increased [Recovered/Resolved]
  - Insomnia [Recovered/Resolved]
  - Pain in extremity [Recovered/Resolved]
  - Visual acuity reduced [Recovered/Resolved]
  - Treatment noncompliance [Unknown]
  - Back pain [Recovered/Resolved]
  - Paraesthesia [Recovered/Resolved]
  - Asthenia [Recovered/Resolved]

NARRATIVE: CASE EVENT DATE: 2016
